FAERS Safety Report 6783006-7 (Version None)
Quarter: 2010Q2

REPORT INFORMATION
  Report Type: 
  Country: None (occurrence: None)
  Receive Date: 20100622
  Receipt Date: 20100611
  Transmission Date: 20101027
  Serious: Yes (Other)
  Sender: FDA-Public Use
  Company Number: US-JNJFOC-20100504424

PATIENT
  Age: 4 Year
  Sex: Male
  Weight: 22.68 kg

DRUGS (10)
  1. CHILDREN'S MOTRIN [Suspect]
     Route: 048
  2. CHILDREN'S MOTRIN [Suspect]
     Indication: PYREXIA
     Route: 048
  3. CHILDREN'S MOTRIN [Suspect]
     Route: 048
  4. CHILDREN'S MOTRIN [Suspect]
     Indication: PYREXIA
     Dosage: 2 TSP
     Route: 048
  5. CHILDREN'S TYLENOL SUSPENSION [Suspect]
     Indication: VIRAL INFECTION
     Dosage: 1 1/2 TSP
     Route: 048
  6. CHILDREN'S TYLENOL SUSPENSION [Suspect]
     Route: 048
  7. CHILDREN'S TYLENOL SUSPENSION [Suspect]
     Indication: PYREXIA
     Dosage: 1 1/2 TSP
     Route: 048
  8. CHILDREN'S TYLENOL SUSPENSION [Suspect]
     Route: 048
  9. CHILDREN'S ZYRTEC ALLERGY [Suspect]
     Indication: MULTIPLE ALLERGIES
  10. BENADRYL [Suspect]
     Indication: MULTIPLE ALLERGIES

REACTIONS (4)
  - PRODUCT QUALITY ISSUE [None]
  - PYREXIA [None]
  - SCREAMING [None]
  - VOMITING [None]
